FAERS Safety Report 18332353 (Version 2)
Quarter: 2021Q4

REPORT INFORMATION
  Report Type: Spontaneous
  Country: US (occurrence: US)
  Receive Date: 20201001
  Receipt Date: 20211014
  Transmission Date: 20220303
  Serious: Yes (Other)
  Sender: FDA-Public Use
  Company Number: US-SAARTEMIS-SAC202009280419

PATIENT
  Age: 45 Year
  Sex: Male

DRUGS (1)
  1. ZANTAC [Suspect]
     Active Substance: RANITIDINE HYDROCHLORIDE
     Indication: Dyspepsia
     Dosage: 300 MG, QD
     Dates: start: 199901, end: 200001

REACTIONS (3)
  - Oesophageal carcinoma [Unknown]
  - Throat cancer [Recovered/Resolved]
  - Nasal disorder [Unknown]

NARRATIVE: CASE EVENT DATE: 20000101
